FAERS Safety Report 24739361 (Version 1)
Quarter: 2024Q4

REPORT INFORMATION
  Report Type: Spontaneous
  Country: US (occurrence: US)
  Receive Date: 20241216
  Receipt Date: 20241216
  Transmission Date: 20250115
  Serious: Yes (Other)
  Sender: MYLAN
  Company Number: US-MYLANLABS-2024M1111157

PATIENT
  Age: 7 Decade
  Sex: Female

DRUGS (7)
  1. DEXAMETHASONE [Suspect]
     Active Substance: DEXAMETHASONE
     Indication: Irritable bowel syndrome
     Dosage: UNK
     Route: 065
  2. DEXAMETHASONE [Suspect]
     Active Substance: DEXAMETHASONE
     Dosage: UNK, DRUG RESTARTED
     Route: 065
  3. CROMOLYN SODIUM [Suspect]
     Active Substance: CROMOLYN SODIUM
     Indication: Irritable bowel syndrome
     Dosage: UNK
     Route: 048
  4. KETAMINE [Concomitant]
     Active Substance: KETAMINE
     Indication: Irritable bowel syndrome
     Dosage: 5-10 MG, QW
     Route: 048
  5. KETAMINE [Concomitant]
     Active Substance: KETAMINE
     Dosage: 20 MILLIGRAM, BIWEEKLY, ONCE EVERY TWO WEEKS
     Route: 048
  6. TETRACYCLINE [Concomitant]
     Active Substance: TETRACYCLINE
     Indication: Tropical sprue
     Dosage: UNK
     Route: 065
  7. FOLIC ACID [Concomitant]
     Active Substance: FOLIC ACID
     Indication: Tropical sprue
     Dosage: UNK
     Route: 065

REACTIONS (4)
  - Rebound effect [Recovering/Resolving]
  - Abdominal pain [Recovering/Resolving]
  - Drug ineffective for unapproved indication [Unknown]
  - Off label use [Unknown]
